FAERS Safety Report 5526851-8 (Version None)
Quarter: 2007Q4

REPORT INFORMATION
  Report Type: 
  Country: None (occurrence: None)
  Receive Date: 20071120
  Receipt Date: 20070918
  Transmission Date: 20080405
  Serious: Yes (Other)
  Sender: FDA-Public Use
  Company Number: 2007078299

PATIENT
  Age: 46 Year
  Sex: Male
  Weight: 77.1115 kg

DRUGS (9)
  1. TIKOSYN [Suspect]
     Indication: ATRIAL FIBRILLATION
     Dosage: 1000 MCG (500 MCG,DAILY)
     Dates: start: 20070917
  2. LOVENOX [Concomitant]
  3. LOPRESSOR [Concomitant]
  4. TOPROL-XL [Concomitant]
  5. PROCARDIA XL [Concomitant]
  6. VITAMIN C (VITAMIN C) [Concomitant]
  7. PROTONIX [Concomitant]
  8. VITAMIN E [Concomitant]
  9. COUMADIN [Concomitant]

REACTIONS (1)
  - ELECTROCARDIOGRAM QT PROLONGED [None]
